FAERS Safety Report 10799067 (Version 1)
Quarter: 2015Q1

REPORT INFORMATION
  Report Type: Spontaneous
  Country: None (occurrence: US)
  Receive Date: 20150216
  Receipt Date: 20150216
  Transmission Date: 20150721
  Serious: No
  Sender: FDA-Public Use
  Company Number: US-ALLERGAN-1402824US

PATIENT
  Age: 62 Year
  Sex: Female

DRUGS (6)
  1. RESTASIS [Suspect]
     Active Substance: CYCLOSPORINE
     Indication: DRY EYE
     Dosage: 2 GTT, UNK
     Route: 047
     Dates: start: 20140129
  2. SYNTHROID [Concomitant]
     Active Substance: LEVOTHYROXINE SODIUM
     Indication: HYPOTHYROIDISM
     Dosage: 75 ?G, QD
     Route: 048
  3. REFRESH OPTIVE PRESERVATIVE FREE [Concomitant]
     Indication: DRY EYE
     Dosage: UNK, PRN
  4. SYSTANE GEL [Concomitant]
     Indication: DRY EYE
     Dosage: UNK UNK, QHS
  5. NASONEX [Concomitant]
     Active Substance: MOMETASONE FUROATE
     Indication: PRODUCT USED FOR UNKNOWN INDICATION
     Dosage: UNK UNK, PRN
  6. SYSTANE (HYPROMELLOSE 2910 (4000 MPA.S)) [Concomitant]
     Active Substance: HYPROMELLOSE 2910 (4000 MPA.S)
     Indication: DRY EYE
     Dosage: UNK UNK, PRN

REACTIONS (7)
  - Eye pain [Unknown]
  - Eye irritation [Unknown]
  - Hypersensitivity [Unknown]
  - Upper-airway cough syndrome [Not Recovered/Not Resolved]
  - Swelling face [Recovered/Resolved]
  - Rhinorrhoea [Unknown]
  - Eye swelling [Unknown]
